FAERS Safety Report 8939474 (Version 1)
Quarter: 2012Q4

REPORT INFORMATION
  Report Type: 
  Country: DE (occurrence: GB)
  Receive Date: 20121203
  Receipt Date: 20121203
  Transmission Date: 20130627
  Serious: Yes (Other)
  Sender: FDA-Public Use
  Company Number: GB-BRISTOL-MYERS SQUIBB COMPANY-17160623

PATIENT
  Age: 70 Year
  Sex: Female
  Weight: 72 kg

DRUGS (8)
  1. IBUPROFEN [Suspect]
  2. LOPERAMIDE HCL [Suspect]
  3. METFORMIN HCL [Suspect]
  4. ISOSORBIDE MONONITRATE [Suspect]
  5. GLYCERYL TRINITRATE [Suspect]
     Route: 060
  6. LANSOPRAZOLE [Suspect]
  7. ATORVASTATIN [Suspect]
  8. CARBAMAZEPINE [Suspect]
     Indication: ANALGESIC THERAPY

REACTIONS (1)
  - Colitis microscopic [Unknown]
